FAERS Safety Report 8092645-5 (Version None)
Quarter: 2012Q1

REPORT INFORMATION
  Report Type: 
  Country: None (occurrence: None)
  Receive Date: 20120131
  Receipt Date: 20120123
  Transmission Date: 20120608
  Serious: Yes (Life-Threatening, Hospitalization)
  Sender: FDA-Public Use
  Company Number: US-BAYER-2011-008120

PATIENT
  Age: 50 Year
  Sex: Female
  Weight: 107.48 kg

DRUGS (20)
  1. YASMIN [Suspect]
     Indication: ORAL CONTRACEPTION
  2. POTASSIUM [Concomitant]
  3. AMOXICILLIN [Concomitant]
  4. HYDROCHLOROTHIAZIDE [Concomitant]
  5. YASMIN [Suspect]
     Indication: ACNE
  6. ZANAFLEX [Concomitant]
     Indication: FIBROMYALGIA
     Dosage: 4 MG, QD
     Route: 048
     Dates: start: 20000101, end: 20100101
  7. CARDIZEM [Concomitant]
     Indication: BLOOD PRESSURE ABNORMAL
     Dosage: 120 MG, QD
     Route: 048
  8. PATANOL [Concomitant]
  9. MIDRIN [Concomitant]
     Indication: MIGRAINE
     Route: 048
  10. FLONASE [Concomitant]
     Indication: DYSPNOEA
  11. YAZ [Suspect]
     Indication: ORAL CONTRACEPTION
  12. AMBIEN [Concomitant]
     Indication: FIBROMYALGIA
     Dosage: UNK
     Dates: start: 20000101, end: 20100101
  13. MEPERIDINE HCL [Concomitant]
  14. DILTIAZEM HCL [Concomitant]
     Dosage: UNK
     Dates: start: 20000101, end: 20100101
  15. SYNTHROID [Concomitant]
     Indication: THYROID DISORDER
     Dosage: 0.75 MG, QD
     Route: 048
     Dates: start: 20000101, end: 20100101
  16. DARVOCET [Concomitant]
  17. ZANAFLEX [Concomitant]
     Indication: MUSCLE SPASMS
  18. CODEINE [Concomitant]
  19. YAZ [Suspect]
     Indication: ACNE
  20. ACYCLOVIR [Concomitant]
     Indication: ORAL HERPES
     Dosage: 800 MG, PRN
     Route: 048

REACTIONS (6)
  - DEEP VEIN THROMBOSIS [None]
  - INJURY [None]
  - PULMONARY EMBOLISM [None]
  - INTRACARDIAC THROMBUS [None]
  - THROMBOSIS [None]
  - PAIN [None]
